FAERS Safety Report 7533263-4 (Version None)
Quarter: 2011Q2

REPORT INFORMATION
  Report Type: 
  Country: None (occurrence: None)
  Receive Date: 20110608
  Receipt Date: 20051018
  Transmission Date: 20111010
  Serious: Yes (Hospitalization)
  Sender: FDA-Public Use
  Company Number: PHEH2005US09856

PATIENT

DRUGS (6)
  1. AGGRENOX [Concomitant]
     Indication: CEREBROVASCULAR ACCIDENT
     Dosage: 200 MG, BID
     Dates: start: 20050822
  2. DIOVAN [Suspect]
     Indication: HYPERTENSION
     Dosage: 160 MG, QD
     Route: 048
  3. LOTREL [Suspect]
     Indication: HYPERTENSION
     Dosage: 5/20 MG DAILY
     Route: 048
     Dates: start: 20011115, end: 20011124
  4. LOTREL [Suspect]
     Dosage: 5/20 MG DAILY
     Route: 048
     Dates: start: 20050816
  5. TOPROL-XL [Concomitant]
     Indication: HYPERTENSION
     Dosage: 50 MG, QD
     Route: 048
     Dates: start: 20011018
  6. LIPITOR [Concomitant]
     Indication: HYPERCHOLESTEROLAEMIA
     Dosage: 20 MG, QD
     Dates: start: 20011022

REACTIONS (1)
  - CEREBROVASCULAR ACCIDENT [None]
